FAERS Safety Report 9363823 (Version 1)
Quarter: 2013Q2

REPORT INFORMATION
  Report Type: Spontaneous
  Country: IT (occurrence: IT)
  Receive Date: 20130624
  Receipt Date: 20130624
  Transmission Date: 20140414
  Serious: Yes (Hospitalization)
  Sender: FDA-Public Use
  Company Number: IT-US-EMD SERONO, INC.-7217865

PATIENT
  Age: 57 Year
  Sex: Male

DRUGS (1)
  1. SAIZEN [Suspect]
     Indication: MYOCARDIAL INFARCTION

REACTIONS (2)
  - Neoplasm progression [Recovered/Resolved]
  - Off label use [Unknown]
